FAERS Safety Report 4500301-2 (Version None)
Quarter: 2004Q4

REPORT INFORMATION
  Report Type: 
  Country: None (occurrence: None)
  Receive Date: 20041112
  Receipt Date: 20040811
  Transmission Date: 20050328
  Serious: Yes (Hospitalization)
  Sender: FDA-Public Use
  Company Number: US-MERCK-0408USA00966

PATIENT
  Age: 30 Year
  Sex: Female
  Weight: 82 kg

DRUGS (4)
  1. VIOXX [Suspect]
     Indication: ARTHRALGIA
     Route: 048
     Dates: start: 20020802, end: 20020807
  2. OVCON-35 [Concomitant]
     Route: 065
     Dates: start: 20040101
  3. IBUPROFEN [Concomitant]
     Indication: ANALGESIC EFFECT
     Route: 065
     Dates: start: 20020601
  4. AMITRIPTYLINE HYDROCHLORIDE [Concomitant]
     Indication: DEPRESSION
     Route: 065

REACTIONS (13)
  - ACUTE CORONARY SYNDROME [None]
  - ACUTE MYOCARDIAL INFARCTION [None]
  - ANXIETY [None]
  - ARTERIAL THROMBOSIS [None]
  - CHEST DISCOMFORT [None]
  - CHEST PAIN [None]
  - CORONARY ARTERY OCCLUSION [None]
  - ELECTROCARDIOGRAM CHANGE [None]
  - FATIGUE [None]
  - HYPERHIDROSIS [None]
  - LIMB DISCOMFORT [None]
  - MYOCARDIAL INFARCTION [None]
  - PALPITATIONS [None]
